FAERS Safety Report 7013425-5 (Version None)
Quarter: 2010Q3

REPORT INFORMATION
  Report Type: 
  Country: None (occurrence: None)
  Receive Date: 20100924
  Receipt Date: 20070725
  Transmission Date: 20110219
  Serious: Yes (Other)
  Sender: FDA-Public Use
  Company Number: US-CELGENEUS-083-21880-07071479

PATIENT

DRUGS (6)
  1. REVLIMID [Suspect]
     Route: 048
  2. DEXAMETHASONE [Suspect]
     Indication: MULTIPLE MYELOMA
     Route: 065
  3. MELPHALAN HYDROCHLORIDE [Suspect]
     Route: 065
  4. PREDNISONE TAB [Suspect]
     Route: 065
  5. BORTEZOMIB [Suspect]
     Route: 065
  6. ASPIRIN [Concomitant]
     Route: 065

REACTIONS (5)
  - EMBOLISM ARTERIAL [None]
  - FEBRILE NEUTROPENIA [None]
  - NEUTROPENIA [None]
  - THROMBOCYTOPENIA [None]
  - VASCULITIS [None]
